FAERS Safety Report 10610716 (Version 1)
Quarter: 2014Q4

REPORT INFORMATION
  Report Type: Spontaneous
  Country: IT (occurrence: None)
  Receive Date: 20141124
  Receipt Date: 20141124
  Transmission Date: 20150529
  Serious: Yes (Hospitalization)
  Sender: FDA-Public Use
  Company Number: KAD201411-001497

PATIENT
  Age: 71 Year
  Sex: Male
  Weight: 68 kg

DRUGS (3)
  1. RIBAVIRIN. [Suspect]
     Active Substance: RIBAVIRIN
     Indication: HEPATIC CIRRHOSIS
     Route: 048
     Dates: start: 20130321, end: 20140220
  2. PEGASYS [Suspect]
     Active Substance: PEGINTERFERON ALFA-2A
     Indication: HEPATIC CIRRHOSIS
     Dosage: SOLUTION FOR INJECTION
     Route: 058
     Dates: start: 20130321, end: 20140220
  3. BOCEPREVIR (BOCEPREVIR) [Suspect]
     Active Substance: BOCEPREVIR
     Indication: HEPATIC CIRRHOSIS
     Dosage: HARD
     Route: 048
     Dates: start: 20130418, end: 20140220

REACTIONS (4)
  - Tremor [None]
  - Peritonitis bacterial [None]
  - Chills [None]
  - Weight increased [None]

NARRATIVE: CASE EVENT DATE: 20131012
